FAERS Safety Report 6062045-8 (Version None)
Quarter: 2009Q1

REPORT INFORMATION
  Report Type: 
  Country: None (occurrence: None)
  Receive Date: 20090202
  Receipt Date: 20090119
  Transmission Date: 20090719
  Serious: Yes (Hospitalization)
  Sender: FDA-Public Use
  Company Number: FR-GENENTECH-276376

PATIENT
  Sex: Male

DRUGS (23)
  1. MABTHERA [Suspect]
     Indication: B-CELL LYMPHOMA
     Dosage: 800 MG, UNK
     Route: 042
     Dates: start: 20040801
  2. GENTAMYCIN SULFATE [Suspect]
     Indication: DRUG USE FOR UNKNOWN INDICATION
     Dosage: 40 MG, BID
     Route: 065
     Dates: start: 20080910
  3. PIPERACILLINE [Concomitant]
     Indication: DRUG USE FOR UNKNOWN INDICATION
  4. TAZOBACTAM [Concomitant]
     Indication: DRUG USE FOR UNKNOWN INDICATION
  5. VANCOMYCIN [Concomitant]
     Indication: DRUG USE FOR UNKNOWN INDICATION
  6. SULPHAMETHOXAZOLE [Concomitant]
     Indication: DRUG USE FOR UNKNOWN INDICATION
  7. PREDNISOLONE [Concomitant]
     Indication: DRUG USE FOR UNKNOWN INDICATION
  8. CEFPODOXIME PROXETIL [Concomitant]
     Indication: DRUG USE FOR UNKNOWN INDICATION
  9. CEFUROXIME [Concomitant]
     Indication: DRUG USE FOR UNKNOWN INDICATION
  10. PYOSTACINE [Concomitant]
     Indication: DRUG USE FOR UNKNOWN INDICATION
  11. MOXIFLOXACIN [Concomitant]
     Indication: DRUG USE FOR UNKNOWN INDICATION
  12. ALPRAZOLAM [Concomitant]
     Indication: DRUG USE FOR UNKNOWN INDICATION
  13. PROPOFOL [Concomitant]
     Indication: DRUG USE FOR UNKNOWN INDICATION
  14. SUFENTANIL [Concomitant]
     Indication: DRUG USE FOR UNKNOWN INDICATION
  15. SEVOFLURANE [Concomitant]
     Indication: DRUG USE FOR UNKNOWN INDICATION
  16. BETAMETHASONE [Concomitant]
     Indication: DRUG USE FOR UNKNOWN INDICATION
  17. FLUDARABINE [Concomitant]
     Indication: DRUG USE FOR UNKNOWN INDICATION
  18. CIFLOX [Concomitant]
     Indication: DRUG USE FOR UNKNOWN INDICATION
  19. CYCLOPHOSPHAMIDE [Concomitant]
     Indication: DRUG USE FOR UNKNOWN INDICATION
  20. CARMUSTINE [Concomitant]
     Indication: DRUG USE FOR UNKNOWN INDICATION
  21. CYTARABINE [Concomitant]
     Indication: DRUG USE FOR UNKNOWN INDICATION
  22. ETOPOSIDE [Concomitant]
     Indication: DRUG USE FOR UNKNOWN INDICATION
  23. MELPHALAN [Concomitant]
     Indication: DRUG USE FOR UNKNOWN INDICATION

REACTIONS (1)
  - DEAFNESS [None]
